FAERS Safety Report 16568653 (Version 1)
Quarter: 2019Q3

REPORT INFORMATION
  Report Type: Spontaneous
  Country: DE (occurrence: DE)
  Receive Date: 20190713
  Receipt Date: 20190713
  Transmission Date: 20191004
  Serious: Yes (Hospitalization)
  Sender: FDA-Public Use
  Company Number: DE-PURDUE PHARMA-GBR-2019-0067868

PATIENT
  Age: 74 Year
  Sex: Male

DRUGS (19)
  1. DIGIMERCK [Concomitant]
     Active Substance: DIGITOXIN
     Dosage: 0.07 MG, UNK (1-0-0-0)
  2. METOHEXAL                          /00376902/ [Concomitant]
     Active Substance: METOPROLOL SUCCINATE
     Dosage: 95 MG, UNK (1-0-1-0)
  3. RANEXA [Concomitant]
     Active Substance: RANOLAZINE
     Dosage: 1-0-1-0
  4. ATORVASTATIN [Concomitant]
     Active Substance: ATORVASTATIN
     Dosage: 20 MG, UNK (0-0-1-0)
  5. APIXABAN [Concomitant]
     Active Substance: APIXABAN
     Dosage: 5 MG, UNK (1-0-1-0)
  6. FORMOTEROL [Concomitant]
     Active Substance: FORMOTEROL
     Dosage: 1-0-1-0
  7. TAMSULOSIN [Concomitant]
     Active Substance: TAMSULOSIN
  8. MIFLONIDE [Concomitant]
     Active Substance: BUDESONIDE
     Dosage: 400 MCG, UNK (1-0-1-0)
  9. GABAPENTIN. [Concomitant]
     Active Substance: GABAPENTIN
     Dosage: 300 MG, UNK (1-0-2-0)
  10. HYDROMORPHONE HYDROCHLORIDE. [Suspect]
     Active Substance: HYDROMORPHONE HYDROCHLORIDE
     Indication: PRODUCT USED FOR UNKNOWN INDICATION
     Dosage: 4 MG, UNK (2-0-1-0)
     Route: 065
  11. FUROSEMID                          /00032601/ [Concomitant]
     Active Substance: FUROSEMIDE
     Dosage: 40 MG, UNK (0.5-0-0-0)
  12. XIPAMIDE [Concomitant]
     Active Substance: XIPAMIDE
     Dosage: 10 MG, UNK (0.5-0-0.5-0)
  13. PREDNISOLON                        /00016201/ [Suspect]
     Active Substance: PREDNISOLONE
     Indication: PRODUCT USED FOR UNKNOWN INDICATION
     Dosage: 5 MG, UNK (1-0-0-0)
     Route: 065
  14. METFORMIN [Concomitant]
     Active Substance: METFORMIN HYDROCHLORIDE
     Dosage: 1000 MG, UNK (1-0-1-0)
  15. NOVORAPID [Concomitant]
     Active Substance: INSULIN ASPART
     Dosage: NACH SCHEMA
  16. LEFLUNOMIDE. [Suspect]
     Active Substance: LEFLUNOMIDE
     Indication: PRODUCT USED FOR UNKNOWN INDICATION
     Dosage: 20 MG, UNK (1-0-0-0)
     Route: 065
  17. PANTOPRAZOLE [Concomitant]
     Active Substance: PANTOPRAZOLE
     Dosage: 40 MG, UNK (1-0-0-1)
  18. SPIRIVA [Concomitant]
     Active Substance: TIOTROPIUM BROMIDE MONOHYDRATE
     Dosage: 1-0-0-0
  19. LEVEMIR [Concomitant]
     Active Substance: INSULIN DETEMIR
     Dosage: NACH SCHEMA

REACTIONS (3)
  - Dyspnoea [Unknown]
  - Hypercapnia [Unknown]
  - Pneumonia [Unknown]
